FAERS Safety Report 6609857-7 (Version None)
Quarter: 2010Q1

REPORT INFORMATION
  Report Type: 
  Country: None (occurrence: None)
  Receive Date: 20100302
  Receipt Date: 20100219
  Transmission Date: 20100710
  Serious: Yes (Hospitalization)
  Sender: FDA-Public Use
  Company Number: FR-AMGEN-US329212

PATIENT
  Sex: Female
  Weight: 60 kg

DRUGS (6)
  1. ENBREL [Suspect]
     Indication: RHEUMATOID ARTHRITIS
     Route: 058
     Dates: start: 20030101, end: 20080901
  2. PARACETAMOL [Concomitant]
     Dosage: UNKNOWN
     Route: 065
  3. CACIT VITAMINE D3 [Concomitant]
     Dosage: UNKNOWN
     Route: 048
  4. LIPANTHYL [Concomitant]
     Dosage: UNKNOWN
     Route: 048
  5. CORTANCYL [Concomitant]
     Dosage: UNKNOWN
     Route: 048
  6. OMEPRAZOLE [Concomitant]
     Dosage: UNKNOWN
     Route: 048

REACTIONS (2)
  - MALIGNANT TRANSFORMATION [None]
  - SUPERFICIAL SPREADING MELANOMA STAGE UNSPECIFIED [None]
